FAERS Safety Report 7998836 (Version 2)
Quarter: 2012Q4

REPORT INFORMATION
  Report Type: 
  Country: US (occurrence: US)
  Receive Date: 20110621
  Receipt Date: 20121114
  Transmission Date: 20130627
  Serious: No
  Sender: FDA-Public Use
  Company Number: US-BIOGENIDEC-2011BI021834

PATIENT
  Age: 52 Year
  Sex: Female

DRUGS (2)
  1. TYSABRI [Suspect]
     Indication: MULTIPLE SCLEROSIS
     Route: 042
     Dates: start: 20110214, end: 20111227
  2. TYSABRI [Suspect]
     Indication: MULTIPLE SCLEROSIS
     Route: 042
     Dates: start: 20120612, end: 20120905

REACTIONS (7)
  - Throat tightness [Recovered/Resolved]
  - Eye swelling [Recovered/Resolved]
  - Influenza like illness [Unknown]
  - Hypoaesthesia [Recovered/Resolved]
  - Pharyngeal oedema [Recovered/Resolved]
  - Stomatitis [Recovered/Resolved]
  - Nasal ulcer [Not Recovered/Not Resolved]
